FAERS Safety Report 21887996 (Version 3)
Quarter: 2023Q2

REPORT INFORMATION
  Report Type: Report from Study
  Country: US (occurrence: US)
  Receive Date: 20230120
  Receipt Date: 20230421
  Transmission Date: 20230722
  Serious: No
  Sender: FDA-Public Use
  Company Number: US-BIOVITRUM-2023US00487

PATIENT
  Age: 48 Year
  Sex: Female

DRUGS (1)
  1. KINERET [Suspect]
     Active Substance: ANAKINRA
     Indication: Rheumatoid arthritis
     Dosage: 100 MG DAILY
     Route: 058
     Dates: start: 20221216

REACTIONS (6)
  - Dermatitis [Recovering/Resolving]
  - Rash [Recovering/Resolving]
  - Product dose omission issue [Unknown]
  - Injection site pruritus [Unknown]
  - Injection site urticaria [Unknown]
  - Hypersensitivity [Unknown]
